FAERS Safety Report 9356307 (Version 2)
Quarter: 2013Q2

REPORT INFORMATION
  Report Type: Spontaneous
  Country: US (occurrence: None)
  Receive Date: 20130614
  Receipt Date: 20130621
  Transmission Date: 20140414
  Serious: Yes (Other)
  Sender: FDA-Public Use
  Company Number: US-1198683

PATIENT
  Age: 90 Year
  Sex: Female

DRUGS (1)
  1. DUREZOL [Suspect]
     Indication: CORNEAL TRANSPLANT
     Route: 047
     Dates: start: 2013, end: 20130604

REACTIONS (2)
  - Corneal graft rejection [None]
  - Product physical issue [None]
